FAERS Safety Report 4702693-8 (Version None)
Quarter: 2005Q2

REPORT INFORMATION
  Report Type: 
  Country: None (occurrence: None)
  Receive Date: 20050629
  Receipt Date: 20050425
  Transmission Date: 20051028
  Serious: No
  Sender: FDA-Public Use
  Company Number: US-GLAXOSMITHKLINE-A0555428A

PATIENT
  Sex: Female

DRUGS (1)
  1. ZYBAN [Suspect]
     Route: 048

REACTIONS (2)
  - HYPERSENSITIVITY [None]
  - THERAPEUTIC RESPONSE UNEXPECTED [None]
